FAERS Safety Report 7712940-6 (Version None)
Quarter: 2011Q3

REPORT INFORMATION
  Report Type: 
  Country: None (occurrence: None)
  Receive Date: 20110826
  Receipt Date: 20110815
  Transmission Date: 20111222
  Serious: Yes (Other)
  Sender: FDA-Public Use
  Company Number: PHHY2011US65016

PATIENT
  Sex: Female
  Weight: 73.469 kg

DRUGS (4)
  1. RECLAST [Suspect]
     Indication: SENILE OSTEOPOROSIS
     Dosage: 5 MG/ 100 ML
     Route: 042
     Dates: start: 20110517
  2. CALCIUM WITH VITAMIN D [Concomitant]
     Dosage: UNK UKN, UNK
  3. LOSARTAN POTASSIUM [Concomitant]
     Indication: HYPERTENSION
     Dosage: UNK UKN, UNK
  4. LIPITOR [Concomitant]
     Dosage: UNK UKN, UNK

REACTIONS (17)
  - CANDIDIASIS [None]
  - ESCHERICHIA INFECTION [None]
  - ANXIETY [None]
  - RENAL DISORDER [None]
  - WEIGHT DECREASED [None]
  - GLOMERULAR FILTRATION RATE DECREASED [None]
  - FATIGUE [None]
  - DIARRHOEA [None]
  - BLOOD CREATININE INCREASED [None]
  - BLOOD CHLORIDE INCREASED [None]
  - DIZZINESS [None]
  - URINARY TRACT INFECTION [None]
  - HEADACHE [None]
  - BLOOD UREA INCREASED [None]
  - DECREASED APPETITE [None]
  - CHILLS [None]
  - NAUSEA [None]
